FAERS Safety Report 6505826-6 (Version None)
Quarter: 2009Q4

REPORT INFORMATION
  Report Type: 
  Country: None (occurrence: None)
  Receive Date: 20091217
  Receipt Date: 20091217
  Transmission Date: 20100525
  Serious: No
  Sender: FDA-Public Use
  Company Number: None

PATIENT
  Age: 18 Year
  Sex: Male
  Weight: 79.3795 kg

DRUGS (2)
  1. ABILIFY [Suspect]
     Indication: BIPOLAR DISORDER
     Dosage: 10 MG DAILY PO
     Route: 048
     Dates: start: 20030101, end: 20091101
  2. ABILIFY [Suspect]
     Indication: BIPOLAR DISORDER
     Dosage: 5 MG DAILY PO
     Route: 048
     Dates: start: 20030101, end: 20091101

REACTIONS (1)
  - TARDIVE DYSKINESIA [None]
